FAERS Safety Report 9717534 (Version 3)
Quarter: 2015Q3

REPORT INFORMATION
  Report Type: Spontaneous
  Country: US (occurrence: US)
  Receive Date: 20131127
  Receipt Date: 20150803
  Transmission Date: 20151125
  Serious: No
  Sender: FDA-Public Use
  Company Number: US-GILEAD-2009-0020507

PATIENT
  Age: 77 Year
  Sex: Female
  Weight: 65.77 kg

DRUGS (9)
  1. WARFARIN [Concomitant]
     Active Substance: WARFARIN
  2. METOPROLOL [Concomitant]
     Active Substance: METOPROLOL
  3. TRIAMTERENE AND HYDROCHLOROTHIAZIDE [Concomitant]
     Active Substance: HYDROCHLOROTHIAZIDE\TRIAMTERENE
  4. LEVOTHYROXINE. [Concomitant]
     Active Substance: LEVOTHYROXINE
  5. LETAIRIS [Suspect]
     Active Substance: AMBRISENTAN
     Indication: PULMONARY ARTERIAL HYPERTENSION
     Route: 048
     Dates: start: 20090212
  6. AVAPRO [Concomitant]
     Active Substance: IRBESARTAN
  7. BONIVA [Concomitant]
     Active Substance: IBANDRONATE SODIUM
  8. FUROSEMIDE. [Concomitant]
     Active Substance: FUROSEMIDE
  9. POTASSIUM CL [Concomitant]
     Active Substance: POTASSIUM CHLORIDE

REACTIONS (1)
  - Fatigue [Unknown]
